FAERS Safety Report 15412334 (Version 1)
Quarter: 2018Q4

REPORT INFORMATION
  Report Type: Other
  Country: IT (occurrence: IT)
  Receive Date: 20180921
  Receipt Date: 20180921
  Transmission Date: 20190204
  Serious: Yes (Other)
  Sender: FDA-Public Use
  Company Number: IT-AUROBINDO-AUR-APL-2013-10622

PATIENT
  Age: 66 Year
  Sex: Female

DRUGS (3)
  1. MIRTAZAPINA AUROBINDO PHARMA ITALIA 30 MG COMPRESSE RIVESTITE CON FILM [Suspect]
     Active Substance: MIRTAZAPINE
     Indication: DEPRESSION
     Dosage: UNK UNK,UNK,
     Route: 065
     Dates: start: 20130101, end: 20131004
  2. PAROXETINA AUROBINDO 20MG COMPRESSE RIVESTITE CON FILM [Suspect]
     Active Substance: PAROXETINE HYDROCHLORIDE
     Indication: DEPRESSION
     Dosage: UNK UNK,UNK,
     Route: 065
     Dates: start: 20130101, end: 20131004
  3. PRAZENE [Concomitant]
     Active Substance: PRAZEPAM
     Indication: PRODUCT USED FOR UNKNOWN INDICATION
     Dosage: UNK UNK,UNK,
     Route: 065

REACTIONS (3)
  - Hypertension [Recovering/Resolving]
  - Hypertransaminasaemia [Recovering/Resolving]
  - Presyncope [Recovering/Resolving]

NARRATIVE: CASE EVENT DATE: 20131004
